FAERS Safety Report 7742666-4 (Version None)
Quarter: 2011Q3

REPORT INFORMATION
  Report Type: 
  Country: None (occurrence: None)
  Receive Date: 20110830
  Receipt Date: 20110817
  Transmission Date: 20111222
  Serious: Yes (Hospitalization)
  Sender: FDA-Public Use
  Company Number: 2009SP017409

PATIENT
  Age: 32 Year
  Sex: Female
  Weight: 65.7716 kg

DRUGS (3)
  1. IBUPROFEN [Concomitant]
  2. NUVARING [Suspect]
     Indication: CONTRACEPTION
     Dosage: QM;VAG
     Route: 067
     Dates: start: 20030703, end: 20051202
  3. IMITREX [Concomitant]

REACTIONS (20)
  - PULMONARY EMBOLISM [None]
  - MIGRAINE [None]
  - INJECTION SITE HAEMATOMA [None]
  - SLEEP DISORDER [None]
  - ABORTION MISSED [None]
  - MATERNAL EXPOSURE DURING PREGNANCY [None]
  - BLINDNESS [None]
  - PREGNANCY WITH CONTRACEPTIVE DEVICE [None]
  - AMNESIA [None]
  - ENDOMETRIOSIS [None]
  - SINUSITIS [None]
  - BALANCE DISORDER [None]
  - DEEP VEIN THROMBOSIS [None]
  - DEPRESSION [None]
  - POST THROMBOTIC SYNDROME [None]
  - ANXIETY [None]
  - ANTITHROMBIN III DEFICIENCY [None]
  - VAGINAL HAEMORRHAGE [None]
  - CERVICAL DYSPLASIA [None]
  - ACTIVITIES OF DAILY LIVING IMPAIRED [None]
